FAERS Safety Report 16821340 (Version 4)
Quarter: 2021Q2

REPORT INFORMATION
  Report Type: Report from Study
  Country: CA (occurrence: CA)
  Receive Date: 20190918
  Receipt Date: 20210616
  Transmission Date: 20210716
  Serious: Yes (Other)
  Sender: FDA-Public Use
  Company Number: PHHY2019CA031070

PATIENT
  Sex: Female

DRUGS (5)
  1. COSENTYX [Suspect]
     Active Substance: SECUKINUMAB
     Indication: ANKYLOSING SPONDYLITIS
     Dosage: 150 MG, QW
     Route: 058
     Dates: start: 20190125
  2. COSENTYX [Suspect]
     Active Substance: SECUKINUMAB
     Dosage: UNK
     Route: 065
     Dates: start: 20210504
  3. PREDNISONE. [Concomitant]
     Active Substance: PREDNISONE
     Indication: PRODUCT USED FOR UNKNOWN INDICATION
     Dosage: UNK
     Route: 065
     Dates: start: 20190109
  4. COSENTYX [Suspect]
     Active Substance: SECUKINUMAB
     Dosage: UNK UNK, QW
     Route: 058
     Dates: start: 20190215
  5. COSENTYX [Suspect]
     Active Substance: SECUKINUMAB
     Dosage: 300 MG, QMO
     Route: 058

REACTIONS (25)
  - Malaise [Unknown]
  - Product dose omission issue [Unknown]
  - Blister [Unknown]
  - Illness [Recovering/Resolving]
  - Pain [Unknown]
  - Condition aggravated [Unknown]
  - Swelling [Unknown]
  - Neck pain [Unknown]
  - Arthralgia [Unknown]
  - Joint swelling [Unknown]
  - Peripheral swelling [Not Recovered/Not Resolved]
  - Throat irritation [Unknown]
  - Disorientation [Unknown]
  - Back pain [Unknown]
  - Discomfort [Unknown]
  - Musculoskeletal stiffness [Unknown]
  - Fatigue [Unknown]
  - Nasal congestion [Not Recovered/Not Resolved]
  - Dizziness [Unknown]
  - Sinusitis [Not Recovered/Not Resolved]
  - Ocular discomfort [Unknown]
  - Pneumonia [Recovering/Resolving]
  - Back disorder [Recovering/Resolving]
  - Dactylitis [Unknown]
  - Gastroenteritis [Recovering/Resolving]

NARRATIVE: CASE EVENT DATE: 2020
